FAERS Safety Report 4736861-6 (Version None)
Quarter: 2005Q3

REPORT INFORMATION
  Report Type: 
  Country: None (occurrence: None)
  Receive Date: 20050808
  Receipt Date: 20050711
  Transmission Date: 20060218
  Serious: Yes (Life-Threatening, Hospitalization, Other)
  Sender: FDA-Public Use
  Company Number: US-GLAXOSMITHKLINE-A0566669A

PATIENT
  Age: 30 Year
  Sex: Female

DRUGS (9)
  1. LAMICTAL [Suspect]
     Indication: BIPOLAR II DISORDER
     Route: 048
     Dates: start: 20050225
  2. EFFEXOR XR [Concomitant]
     Dosage: 112.5MG PER DAY
     Route: 048
     Dates: start: 20040101
  3. SEROQUEL [Concomitant]
     Dosage: 100MG AT NIGHT
     Route: 048
     Dates: start: 20041206
  4. ABILIFY [Concomitant]
     Dosage: 15MG AT NIGHT
     Dates: start: 20050216, end: 20050223
  5. KLONOPIN [Concomitant]
     Dates: end: 20050101
  6. XANAX [Concomitant]
     Indication: AKATHISIA
     Dates: start: 20050216
  7. ATIVAN [Concomitant]
     Indication: PANIC REACTION
  8. AMBIEN [Concomitant]
     Indication: INSOMNIA
     Dates: start: 20050302
  9. DEPAKOTE [Concomitant]
     Dates: start: 20050330

REACTIONS (12)
  - BURNING SENSATION [None]
  - CHEST PAIN [None]
  - CONSCIOUSNESS FLUCTUATING [None]
  - DIZZINESS [None]
  - HEADACHE [None]
  - MENINGITIS ASEPTIC [None]
  - MENINGITIS VIRAL [None]
  - MUSCULOSKELETAL STIFFNESS [None]
  - MYALGIA [None]
  - PYREXIA [None]
  - RASH [None]
  - SUICIDAL IDEATION [None]
